FAERS Safety Report 8862080 (Version 3)
Quarter: 2012Q4

REPORT INFORMATION
  Report Type: 
  Country: US (occurrence: US)
  Receive Date: 20121026
  Receipt Date: 20121221
  Transmission Date: 20130627
  Serious: Yes (Hospitalization, Other)
  Sender: FDA-Public Use
  Company Number: US-PFIZER INC-2012265270

PATIENT
  Age: 58 Year
  Sex: Male

DRUGS (3)
  1. DEPO-MEDROL [Suspect]
     Dosage: 80 mg in 1 ml saline
     Route: 008
     Dates: start: 20120627
  2. DEPO-MEDROL [Suspect]
     Dosage: 80 mg in 1 ml saline
     Route: 008
     Dates: start: 20120702
  3. SODIUM CHLORIDE [Suspect]
     Dosage: 0.9 %

REACTIONS (3)
  - Off label use [Unknown]
  - Meningitis staphylococcal [Unknown]
  - Muscle strain [Unknown]
